FAERS Safety Report 7415756-3 (Version None)
Quarter: 2011Q2

REPORT INFORMATION
  Report Type: 
  Country: None (occurrence: None)
  Receive Date: 20110414
  Receipt Date: 20110405
  Transmission Date: 20111010
  Serious: Yes (Death, Life-Threatening, Disabling)
  Sender: FDA-Public Use
  Company Number: JP-BRISTOL-MYERS SQUIBB COMPANY-14807291

PATIENT
  Age: 60 Year
  Sex: Male

DRUGS (6)
  1. EPZICOM [Suspect]
     Indication: HIV INFECTION
     Dosage: 1 D.F= 1 TAB
     Route: 048
     Dates: start: 20070413
  2. BERBERINE [Concomitant]
     Indication: DIARRHOEA
     Dosage: 1 DF = 1 UNITS NOS,TABS
     Route: 048
  3. EPIVER [Suspect]
  4. LOPEMIN [Concomitant]
     Indication: DIARRHOEA
     Route: 048
  5. REYATAZ [Suspect]
     Indication: HIV INFECTION
     Route: 048
     Dates: start: 20040311
  6. RETROVIR [Suspect]

REACTIONS (6)
  - SPINAL COMPRESSION FRACTURE [None]
  - GLUCOSE URINE PRESENT [None]
  - BLOOD GLUCOSE INCREASED [None]
  - METASTASES TO BONE [None]
  - HYPERLIPIDAEMIA [None]
  - HEPATIC FUNCTION ABNORMAL [None]
